FAERS Safety Report 6430443-6 (Version None)
Quarter: 2009Q4

REPORT INFORMATION
  Report Type: 
  Country: None (occurrence: None)
  Receive Date: 20091106
  Receipt Date: 20091027
  Transmission Date: 20100525
  Serious: Yes (Hospitalization)
  Sender: FDA-Public Use
  Company Number: PHHY2009DE46884

PATIENT
  Age: 43 Year
  Sex: Female

DRUGS (1)
  1. METHERGINE [Suspect]
     Indication: MENORRHAGIA
     Dosage: 1 ML, ONCE/SINGLE
     Dates: start: 20091025, end: 20091025

REACTIONS (4)
  - DEPRESSED LEVEL OF CONSCIOUSNESS [None]
  - DIZZINESS [None]
  - PARAESTHESIA [None]
  - TREMOR [None]
